FAERS Safety Report 22341999 (Version 1)
Quarter: 2023Q2

REPORT INFORMATION
  Report Type: Spontaneous
  Country: US (occurrence: US)
  Receive Date: 20230518
  Receipt Date: 20230518
  Transmission Date: 20230721
  Serious: No
  Sender: FDA-Public Use
  Company Number: US-drreddys-SPO/USA/23/0164659

PATIENT
  Age: 15 Year
  Sex: Female

DRUGS (3)
  1. ACCUTANE [Suspect]
     Active Substance: ISOTRETINOIN
     Indication: Product used for unknown indication
     Dosage: RMA ISSUE DATE: 28/MARCH/2022 10:54:46 AM
  2. ACCUTANE [Suspect]
     Active Substance: ISOTRETINOIN
     Dosage: RMA ISSUE DATE: 26/APRIL/2022 01:15:45 PM, 25/MAY/2022 10:23:46 AM, 23/JUNE/2022 09:41:04 AM, 26/JUL
  3. ACCUTANE [Suspect]
     Active Substance: ISOTRETINOIN
     Dosage: RMA ISSUE DATE: 27/MARCH/2023 03:40:32 PM

REACTIONS (1)
  - Arthralgia [Unknown]
